FAERS Safety Report 5689248-6 (Version None)
Quarter: 2008Q1

REPORT INFORMATION
  Report Type: 
  Country: None (occurrence: None)
  Receive Date: 20080331
  Receipt Date: 20080317
  Transmission Date: 20080703
  Serious: Yes (Hospitalization)
  Sender: FDA-Public Use
  Company Number: JP-ROCHE-549653

PATIENT
  Age: 78 Year
  Sex: Female
  Weight: 51 kg

DRUGS (10)
  1. ROCALTROL [Suspect]
     Indication: OSTEOPOROSIS PROPHYLAXIS
     Route: 048
     Dates: start: 20080110, end: 20080222
  2. BONALON [Concomitant]
     Route: 048
     Dates: start: 20080110
  3. ANALGESIC/OTHER DRUG COMBINATIONS [Concomitant]
     Indication: PAIN
     Dosage: DRUG NAME: ANTIPYRETICS, ANALGESICS AND ANTI-INFLAMMATORY AGENTS.
     Dates: start: 19980323
  4. ANALGESIC/OTHER DRUG COMBINATIONS [Concomitant]
     Dates: start: 20050301, end: 20050901
  5. ALOSITOL [Concomitant]
     Route: 048
     Dates: start: 20040601, end: 20080201
  6. ASPIRIN [Concomitant]
     Route: 048
     Dates: start: 20071201
  7. TAKEPRON [Concomitant]
     Route: 048
     Dates: start: 20071201
  8. PL [Concomitant]
     Route: 048
     Dates: start: 20080220, end: 20080220
  9. CLARITHROMYCIN [Concomitant]
     Route: 048
     Dates: start: 20080220, end: 20080220
  10. LAC-B [Concomitant]
     Route: 048
     Dates: start: 20080221

REACTIONS (3)
  - HYPERCALCAEMIA [None]
  - PRURITUS GENERALISED [None]
  - RENAL IMPAIRMENT [None]
